FAERS Safety Report 15285357 (Version 4)
Quarter: 2019Q2

REPORT INFORMATION
  Report Type: Spontaneous
  Country: CA (occurrence: CA)
  Receive Date: 20180816
  Receipt Date: 20190416
  Transmission Date: 20190711
  Serious: Yes (Hospitalization, Other)
  Sender: FDA-Public Use
  Company Number: CA-PFIZER INC-2018324305

PATIENT
  Age: 30 Year
  Sex: Female

DRUGS (6)
  1. CALCITONIN [Suspect]
     Active Substance: CALCITONIN
     Indication: HYPERCALCAEMIA
     Dosage: 4 IU/KG, 2X/DAY
     Route: 065
  2. APO-CALCITONIN [Suspect]
     Active Substance: CALCITONIN
     Indication: HYPERCALCAEMIA
     Dosage: 4 IU/KG, 2X/DAY
     Route: 065
  3. CALCIUM CARBONATE. [Suspect]
     Active Substance: CALCIUM CARBONATE
     Indication: HYPERCALCAEMIA
     Dosage: UNK
     Route: 065
  4. SODIUM CHLORIDE. [Suspect]
     Active Substance: SODIUM CHLORIDE
     Indication: HYPERCALCAEMIA
     Dosage: UNK
     Route: 042
  5. CHOLECALCIFEROL [Suspect]
     Active Substance: CHOLECALCIFEROL
     Indication: PRODUCT USED FOR UNKNOWN INDICATION
     Dosage: 1000 IU, 1X/DAY (1 EVERY 24 HOUR)
     Route: 065
  6. ERGOCALCIFEROL. [Suspect]
     Active Substance: ERGOCALCIFEROL
     Indication: HYPERCALCAEMIA
     Dosage: 1000 IU, UNK
     Route: 065

REACTIONS (9)
  - Blood creatinine increased [Recovered/Resolved]
  - Normal newborn [Recovered/Resolved]
  - Calculus urinary [Recovered/Resolved]
  - Drug ineffective [Recovered/Resolved]
  - Hypercalcaemia [Recovered/Resolved]
  - Blood calcium increased [Recovered/Resolved]
  - Nephrocalcinosis [Recovered/Resolved]
  - Diabetes insipidus [Recovered/Resolved]
  - Renal failure [Recovered/Resolved]
